FAERS Safety Report 14452326 (Version 3)
Quarter: 2019Q1

REPORT INFORMATION
  Report Type: Spontaneous
  Country: AT (occurrence: AT)
  Receive Date: 20180129
  Receipt Date: 20190211
  Transmission Date: 20190417
  Serious: Yes (Hospitalization, Other)
  Sender: FDA-Public Use
  Company Number: AT-PURDUE-GBR-2018-0052563

PATIENT
  Age: 20 Year
  Sex: Male
  Weight: 82 kg

DRUGS (29)
  1. MORPHINE SULFATE. [Suspect]
     Active Substance: MORPHINE SULFATE
     Indication: PRODUCT USED FOR UNKNOWN INDICATION
     Dosage: UNK
     Route: 065
  2. HOVA [Concomitant]
     Active Substance: HERBALS\HOPS\VALERIAN
     Indication: PRODUCT USED FOR UNKNOWN INDICATION
     Dosage: 4 DF, DAILY
     Route: 048
     Dates: start: 20161209, end: 20161209
  3. HOVA [Concomitant]
     Active Substance: HERBALS\HOPS\VALERIAN
     Dosage: 2 DF, DAILY
     Route: 048
     Dates: start: 20161124, end: 20161124
  4. ATARAX [Concomitant]
     Active Substance: HYDROXYZINE HYDROCHLORIDE
     Dosage: 50 MG, UNK
     Dates: start: 20161130, end: 20161130
  5. ZYPREXA [Concomitant]
     Active Substance: OLANZAPINE
     Dosage: 15 MG, UNK
     Dates: start: 20161125, end: 20161205
  6. NOZINAN                            /00038601/ [Suspect]
     Active Substance: LEVOMEPROMAZINE
     Dosage: 40 DF, DAILY
     Route: 048
     Dates: start: 20161204, end: 20161204
  7. NOZINAN                            /00038601/ [Suspect]
     Active Substance: LEVOMEPROMAZINE
     Dosage: 30 DF, DAILY
     Route: 048
     Dates: start: 20161202, end: 20161202
  8. HOVA [Concomitant]
     Active Substance: HERBALS\HOPS\VALERIAN
     Dosage: 2 DF, UNK
     Route: 048
     Dates: start: 20161201, end: 20161205
  9. NOZINAN                            /00038601/ [Suspect]
     Active Substance: LEVOMEPROMAZINE
     Indication: PRODUCT USED FOR UNKNOWN INDICATION
     Dosage: 40 DF, DAILY
     Route: 048
     Dates: start: 20161206, end: 20161206
  10. NOZINAN                            /00038601/ [Suspect]
     Active Substance: LEVOMEPROMAZINE
     Dosage: 40 DF, BID
     Route: 048
     Dates: start: 20161126, end: 20161127
  11. NOZINAN                            /00038601/ [Suspect]
     Active Substance: LEVOMEPROMAZINE
     Dosage: 50 DF, DAILY
     Route: 048
     Dates: start: 20161123, end: 20161123
  12. AMPHETAMINE [Suspect]
     Active Substance: AMPHETAMINE
     Indication: PRODUCT USED FOR UNKNOWN INDICATION
     Route: 065
  13. ZYPREXA [Suspect]
     Active Substance: OLANZAPINE
     Indication: PRODUCT USED FOR UNKNOWN INDICATION
     Dosage: 5 MG, UNK
     Route: 048
  14. HOVA [Concomitant]
     Active Substance: HERBALS\HOPS\VALERIAN
     Dosage: 2 DF, DAILY
     Route: 048
     Dates: start: 20161122, end: 20161122
  15. DIPHENHYDRAMINE HYDROCHLORIDE. [Concomitant]
     Active Substance: DIPHENHYDRAMINE HYDROCHLORIDE
     Dosage: 1 DF, UNK
     Route: 048
     Dates: start: 20161201, end: 20161206
  16. NOZINAN                            /00038601/ [Suspect]
     Active Substance: LEVOMEPROMAZINE
     Dosage: 70 DF, DAILY
     Route: 048
     Dates: start: 20161125, end: 20161125
  17. NOZINAN                            /00038601/ [Suspect]
     Active Substance: LEVOMEPROMAZINE
     Dosage: 40 DF, DAILY
     Route: 048
     Dates: start: 20161124, end: 20161124
  18. NOZINAN                            /00038601/ [Suspect]
     Active Substance: LEVOMEPROMAZINE
     Dosage: 130 DF, DAILY
     Route: 048
     Dates: start: 20161122, end: 20161122
  19. HALDOL [Suspect]
     Active Substance: HALOPERIDOL
     Dosage: 20 MG, UNK
     Route: 048
     Dates: start: 20161123, end: 20161211
  20. HALDOL [Concomitant]
     Active Substance: HALOPERIDOL
     Indication: PRODUCT USED FOR UNKNOWN INDICATION
     Dosage: 40 DF, DAILY
     Dates: start: 20161211, end: 20161211
  21. METAMFETAMINE HYDROCHLORIDE [Suspect]
     Active Substance: METHAMPHETAMINE HYDROCHLORIDE
     Indication: PRODUCT USED FOR UNKNOWN INDICATION
     Route: 065
  22. ABILIFY [Suspect]
     Active Substance: ARIPIPRAZOLE
     Dosage: 7.5 MG, DAILY
     Route: 048
     Dates: start: 20160704, end: 2016
  23. ATARAX [Concomitant]
     Active Substance: HYDROXYZINE HYDROCHLORIDE
     Dosage: 25 MG, UNK
     Dates: start: 20161209, end: 20161209
  24. HALDOL [Concomitant]
     Active Substance: HALOPERIDOL
     Dosage: 50 DF, DAILY
     Route: 048
     Dates: start: 20161210, end: 20161210
  25. HALDOL [Concomitant]
     Active Substance: HALOPERIDOL
     Dosage: 60 DF, DAILY (1FD = 1 DROP)
     Route: 048
     Dates: start: 20161208, end: 20161208
  26. ZYPREXA [Concomitant]
     Active Substance: OLANZAPINE
     Dosage: 5 MG, UNK
     Route: 048
     Dates: start: 20161124, end: 20161124
  27. ABILIFY [Suspect]
     Active Substance: ARIPIPRAZOLE
     Indication: PRODUCT USED FOR UNKNOWN INDICATION
     Dosage: 15 MG, DAILY
     Route: 048
     Dates: start: 2016, end: 20161122
  28. HALDOL [Suspect]
     Active Substance: HALOPERIDOL
     Indication: PRODUCT USED FOR UNKNOWN INDICATION
     Dosage: 40 DF, DAILY
     Route: 048
     Dates: start: 20161211, end: 20161211
  29. HALDOL [Suspect]
     Active Substance: HALOPERIDOL
     Dosage: 50 DF, DAILY
     Route: 048
     Dates: start: 20161121, end: 20161121

REACTIONS (10)
  - Pharyngeal dyskinesia [Recovered/Resolved]
  - Suicidal ideation [Unknown]
  - Dyskinesia [Unknown]
  - Liver function test increased [Recovered/Resolved]
  - Toxicity to various agents [Unknown]
  - Psychotic symptom [Not Recovered/Not Resolved]
  - Dysphagia [Recovered/Resolved]
  - Oropharyngeal spasm [Recovered/Resolved]
  - Muscle spasms [Recovered/Resolved]
  - Wrong technique in product usage process [Unknown]

NARRATIVE: CASE EVENT DATE: 20161123
